FAERS Safety Report 10645317 (Version 35)
Quarter: 2020Q1

REPORT INFORMATION
  Report Type: Report from Study
  Country: CA (occurrence: CA)
  Receive Date: 20141211
  Receipt Date: 20200324
  Transmission Date: 20200409
  Serious: Yes (Hospitalization, Other)
  Sender: FDA-Public Use
  Company Number: PHHY2011CA108771

PATIENT
  Age: 71 Year
  Sex: Female

DRUGS (8)
  1. ATIVAN [Concomitant]
     Active Substance: LORAZEPAM
     Indication: PRODUCT USED FOR UNKNOWN INDICATION
     Dosage: UNK
     Route: 065
  2. ELAVIL [Concomitant]
     Active Substance: AMITRIPTYLINE HYDROCHLORIDE
     Indication: PRODUCT USED FOR UNKNOWN INDICATION
     Dosage: UNK
     Route: 065
  3. LUTATHERA [Concomitant]
     Active Substance: LUTETIUM OXODOTREOTIDE LU-177
     Indication: PRODUCT USED FOR UNKNOWN INDICATION
     Dosage: 1 DF (EVERY 8 WEEKS)
     Route: 042
     Dates: start: 20191212
  4. SANDOSTATIN LAR DEPOT [Suspect]
     Active Substance: OCTREOTIDE ACETATE
     Dosage: 30 MG, QMO (EVERY 4 WEEKS)
     Route: 030
     Dates: start: 20120111
  5. SANDOSTATIN LAR DEPOT [Suspect]
     Active Substance: OCTREOTIDE ACETATE
     Dosage: 40 MG, QMO (EVERY 4 WEEKS)
     Route: 030
     Dates: start: 20120402
  6. AFINITOR [Suspect]
     Active Substance: EVEROLIMUS
     Indication: PRODUCT USED FOR UNKNOWN INDICATION
     Dosage: UNK
     Route: 048
  7. SANDOSTATIN LAR DEPOT [Suspect]
     Active Substance: OCTREOTIDE ACETATE
     Indication: NEUROENDOCRINE TUMOUR
     Dosage: 30 MG, QMO (EVERY 4 WEEKS)
     Route: 030
     Dates: start: 20111101
  8. COVERSYL [Suspect]
     Active Substance: PERINDOPRIL
     Indication: PRODUCT USED FOR UNKNOWN INDICATION
     Dosage: UNK
     Route: 065

REACTIONS (33)
  - Pneumonia [Unknown]
  - Malaise [Unknown]
  - Blood pressure increased [Unknown]
  - Emphysema [Unknown]
  - Fatigue [Unknown]
  - Rhinorrhoea [Unknown]
  - Cardiac murmur [Unknown]
  - Heart rate decreased [Unknown]
  - Drug hypersensitivity [Unknown]
  - Cough [Unknown]
  - Glossodynia [Unknown]
  - Oral pain [Unknown]
  - Pain [Unknown]
  - Adverse drug reaction [Unknown]
  - Diabetes mellitus [Unknown]
  - Frequent bowel movements [Unknown]
  - Hip fracture [Unknown]
  - Mass [Unknown]
  - Urinary tract infection [Recovering/Resolving]
  - Bronchitis [Unknown]
  - Tendonitis [Unknown]
  - Diarrhoea [Unknown]
  - Abdominal distension [Unknown]
  - Feeling abnormal [Unknown]
  - Incoherent [Unknown]
  - Vertebral lesion [Unknown]
  - Cystitis [Recovering/Resolving]
  - Clostridium difficile infection [Unknown]
  - Asthenia [Unknown]
  - Oropharyngeal pain [Unknown]
  - Dyspnoea [Unknown]
  - Stress [Unknown]
  - Flank pain [Unknown]

NARRATIVE: CASE EVENT DATE: 20121004
